FAERS Safety Report 13304560 (Version 1)
Quarter: 2017Q1

REPORT INFORMATION
  Report Type: Spontaneous
  Country: US (occurrence: US)
  Receive Date: 20170307
  Receipt Date: 20170307
  Transmission Date: 20170428
  Serious: No
  Sender: FDA-Public Use
  Company Number: None

PATIENT
  Age: 56 Year
  Sex: Male
  Weight: 89.1 kg

DRUGS (1)
  1. BUPRENORPHINE/NALOXONE [Suspect]
     Active Substance: BUPRENORPHINE\NALOXONE
     Indication: ANGIOEDEMA
     Route: 048
     Dates: start: 20160718, end: 20170217

REACTIONS (1)
  - Angioedema [None]

NARRATIVE: CASE EVENT DATE: 20170217
